FAERS Safety Report 7490065-5 (Version None)
Quarter: 2011Q2

REPORT INFORMATION
  Report Type: 
  Country: None (occurrence: None)
  Receive Date: 20110519
  Receipt Date: 20110509
  Transmission Date: 20111010
  Serious: Yes (Hospitalization)
  Sender: FDA-Public Use
  Company Number: US-CELGENEUS-163-21880-10110085

PATIENT
  Sex: Female

DRUGS (6)
  1. GLUTATHIONE [Concomitant]
     Route: 065
  2. SYNTHROID [Concomitant]
     Route: 065
  3. REVLIMID [Suspect]
     Dosage: 15 MILLIGRAM
     Route: 048
     Dates: start: 20101015
  4. COLOSTRUM [Concomitant]
     Route: 065
  5. STEROIDS [Concomitant]
     Route: 065
  6. NIACIN [Concomitant]
     Route: 065

REACTIONS (3)
  - VAGINAL HAEMORRHAGE [None]
  - INFECTION [None]
  - UTERINE HAEMORRHAGE [None]
